FAERS Safety Report 11067548 (Version 1)
Quarter: 2015Q2

REPORT INFORMATION
  Report Type: Spontaneous
  Country: US (occurrence: None)
  Receive Date: 20150424
  Receipt Date: 20150424
  Transmission Date: 20150821
  Serious: Yes (Death, Hospitalization)
  Sender: FDA-Public Use
  Company Number: None

PATIENT
  Age: 5 Year
  Sex: Female
  Weight: 33.6 kg

DRUGS (4)
  1. DEXAMETHASONE. [Suspect]
     Active Substance: DEXAMETHASONE
     Dates: end: 20080405
  2. METHOTREXATE [Suspect]
     Active Substance: METHOTREXATE
     Dates: end: 20080513
  3. MERCAPTOPURINE. [Suspect]
     Active Substance: MERCAPTOPURINE
     Dates: end: 20080513
  4. VINCRISTINE SULFATE. [Suspect]
     Active Substance: VINCRISTINE SULFATE
     Dates: end: 20080401

REACTIONS (12)
  - Candida infection [None]
  - Multi-organ failure [None]
  - Hepatic function abnormal [None]
  - Febrile neutropenia [None]
  - Pneumonia [None]
  - Blood lactic acid increased [None]
  - Renal failure [None]
  - Metabolic acidosis [None]
  - Coagulopathy [None]
  - Central nervous system haemorrhage [None]
  - Platelet count decreased [None]
  - Septic shock [None]

NARRATIVE: CASE EVENT DATE: 20080518
